FAERS Safety Report 21364228 (Version 1)
Quarter: 2022Q3

REPORT INFORMATION
  Report Type: Spontaneous
  Country: US (occurrence: US)
  Receive Date: 20220922
  Receipt Date: 20220922
  Transmission Date: 20221026
  Serious: Yes (Hospitalization)
  Sender: FDA-Public Use
  Company Number: US-NOVARTISPH-NVSC2022US210737

PATIENT
  Sex: Female

DRUGS (1)
  1. FERUMOXYTOL [Suspect]
     Active Substance: FERUMOXYTOL
     Indication: Product used for unknown indication
     Dosage: UNK( 510MG/17ML)
     Route: 065

REACTIONS (5)
  - Oxygen consumption decreased [Unknown]
  - Rib fracture [Unknown]
  - Cardiac arrest [Unknown]
  - Flushing [Unknown]
  - Dizziness [Unknown]
